APPROVED DRUG PRODUCT: PRASUGREL
Active Ingredient: PRASUGREL HYDROCHLORIDE
Strength: EQ 10MG BASE
Dosage Form/Route: TABLET;ORAL
Application: A205927 | Product #002 | TE Code: AB
Applicant: MYLAN PHARMACEUTICALS INC
Approved: Jul 12, 2017 | RLD: No | RS: No | Type: RX